FAERS Safety Report 5441495-4 (Version None)
Quarter: 2007Q3

REPORT INFORMATION
  Report Type: 
  Country: None (occurrence: None)
  Receive Date: 20070904
  Receipt Date: 20070823
  Transmission Date: 20080115
  Serious: Yes (Congenital Anomaly)
  Sender: FDA-Public Use
  Company Number: US-AMGEN-US240274

PATIENT
  Sex: Male

DRUGS (16)
  1. ENBREL [Suspect]
     Indication: DRUG USE FOR UNKNOWN INDICATION
     Route: 064
     Dates: start: 20050815, end: 20060418
  2. PREDNISONE [Concomitant]
     Route: 064
     Dates: start: 20050816, end: 20060404
  3. NAPROXEN [Concomitant]
     Route: 064
     Dates: start: 20050815, end: 20051218
  4. AMPICILLIN [Concomitant]
     Route: 064
     Dates: start: 20051024, end: 20051031
  5. ASPIRIN [Concomitant]
     Route: 064
     Dates: start: 20050815, end: 20060418
  6. ALEVE [Concomitant]
     Route: 064
     Dates: start: 20051225, end: 20051225
  7. ALEVE [Concomitant]
     Route: 064
     Dates: start: 20060103, end: 20060103
  8. LOPERAMIDE HYDROCHLORIDE [Concomitant]
     Route: 064
     Dates: start: 20051118, end: 20051119
  9. PENICILLIN [Concomitant]
     Route: 064
     Dates: start: 20060125, end: 20060130
  10. RANITIDINE HYDROCHLORIDE [Concomitant]
     Route: 064
     Dates: start: 20050815, end: 20060418
  11. TUMS [Concomitant]
     Route: 064
     Dates: start: 20060329, end: 20060330
  12. TYLENOL (CAPLET) [Concomitant]
     Route: 064
     Dates: start: 20060329, end: 20060331
  13. CALCIUM WITH VITAMIN D [Concomitant]
     Route: 064
  14. PRENATAL VITAMINS [Concomitant]
     Route: 064
     Dates: start: 20050815, end: 20060131
  15. ASCORBIC ACID [Concomitant]
     Route: 064
     Dates: start: 20050815, end: 20060418
  16. IRON [Concomitant]
     Route: 064
     Dates: start: 20050815, end: 20060418

REACTIONS (2)
  - CONGENITAL EYE DISORDER [None]
  - TRANSPLANT [None]
